FAERS Safety Report 7312609-6 (Version None)
Quarter: 2011Q1

REPORT INFORMATION
  Report Type: 
  Country: None (occurrence: None)
  Receive Date: 20110224
  Receipt Date: 20100721
  Transmission Date: 20110831
  Serious: No
  Sender: FDA-Public Use
  Company Number: US-MYLANLABS-2010S1013301

PATIENT
  Age: 58 Year
  Sex: Female

DRUGS (1)
  1. ATENOLOL [Suspect]
     Indication: BLOOD PRESSURE INCREASED
     Route: 048
     Dates: start: 20090901

REACTIONS (1)
  - MALAISE [None]
